FAERS Safety Report 4816496-7 (Version None)
Quarter: 2005Q4

REPORT INFORMATION
  Report Type: 
  Country: None (occurrence: None)
  Receive Date: 20051028
  Receipt Date: 20051017
  Transmission Date: 20060501
  Serious: Yes (Other)
  Sender: FDA-Public Use
  Company Number: HQWYE103919OCT05

PATIENT
  Age: 64 Year
  Sex: Male
  Weight: 108.6 kg

DRUGS (20)
  1. RAPAMUNE [Suspect]
     Indication: PROPHYLAXIS AGAINST TRANSPLANT REJECTION
     Dosage: 6 MG 1X PER 1 DAY, ORAL
     Route: 048
     Dates: start: 20050121
  2. RAPAMUNE [Suspect]
  3. ZENAPAX [Concomitant]
  4. CELLCEPT [Concomitant]
  5. PREDNISONE [Concomitant]
  6. PROCRIT [Concomitant]
  7. BACTRIM [Concomitant]
  8. ASPIRIN [Concomitant]
  9. ACTOS [Concomitant]
  10. LEXAPRO [Concomitant]
  11. ZOCOR [Concomitant]
  12. FERROUS SULFATE TAB [Concomitant]
  13. SYNTHROID [Concomitant]
  14. MULTIVITAMINS, PLAIN (MULTIVITAMINS, PLAIN) [Concomitant]
  15. PROTONIX [Concomitant]
  16. METOPROLOL TARTRATE [Concomitant]
  17. ISOSORBIDE DINITRATE [Concomitant]
  18. BUMEX [Concomitant]
  19. LANTUS [Concomitant]
  20. INSULIN [Concomitant]

REACTIONS (2)
  - DRUG INEFFECTIVE [None]
  - KIDNEY TRANSPLANT REJECTION [None]
